FAERS Safety Report 7497397-5 (Version None)
Quarter: 2011Q2

REPORT INFORMATION
  Report Type: 
  Country: None (occurrence: None)
  Receive Date: 20110523
  Receipt Date: 20100602
  Transmission Date: 20111010
  Serious: No
  Sender: FDA-Public Use
  Company Number: US-NOVEN PHARMACEUTICAL, INC.-ALL1-2010-01743

PATIENT

DRUGS (1)
  1. DAYTRANA [Suspect]
     Dosage: 20 MG, 1X/DAY:QD ON SCHOOL DAYS
     Route: 062
     Dates: start: 20100316

REACTIONS (6)
  - FEELING ABNORMAL [None]
  - ABDOMINAL PAIN UPPER [None]
  - DECREASED APPETITE [None]
  - INSOMNIA [None]
  - INCORRECT DRUG ADMINISTRATION DURATION [None]
  - VOMITING [None]
